FAERS Safety Report 10254686 (Version 1)
Quarter: 2014Q2

REPORT INFORMATION
  Report Type: Spontaneous
  Country: US (occurrence: None)
  Receive Date: 20140620
  Receipt Date: 20140620
  Transmission Date: 20141212
  Serious: Yes (Hospitalization)
  Sender: FDA-Public Use
  Company Number: None

PATIENT
  Age: 66 Year
  Sex: Female
  Weight: 58.9 kg

DRUGS (9)
  1. EFFIENT [Suspect]
     Indication: CORONARY ARTERIAL STENT INSERTION
     Dosage: 1 TABLET QD ORAL
     Route: 048
  2. EFFIENT [Suspect]
     Indication: POSTOPERATIVE CARE
     Dosage: 1 TABLET QD ORAL
     Route: 048
  3. ASPIRIN 81 MG [Concomitant]
  4. MELOXICAM [Concomitant]
  5. CITALOPRAM [Concomitant]
  6. METFORMIN [Concomitant]
  7. ATORVASTATIN [Concomitant]
  8. METOPROLOL SUCCINATE [Concomitant]
  9. AMLODIPINE [Concomitant]

REACTIONS (1)
  - Gastrointestinal haemorrhage [None]
